FAERS Safety Report 19886075 (Version 2)
Quarter: 2021Q4

REPORT INFORMATION
  Report Type: Report from Study
  Country: US (occurrence: US)
  Receive Date: 20210928
  Receipt Date: 20211103
  Transmission Date: 20220303
  Serious: Yes (Other)
  Sender: FDA-Public Use
  Company Number: US-NOVARTISPH-NVSC2021US218604

PATIENT
  Age: 55 Year
  Sex: Male

DRUGS (4)
  1. COSENTYX [Suspect]
     Active Substance: SECUKINUMAB
     Indication: Psoriasis
     Dosage: 300 MG, QMO
     Route: 058
  2. COSENTYX [Suspect]
     Active Substance: SECUKINUMAB
     Indication: Psoriatic arthropathy
  3. PLAVIX [Concomitant]
     Active Substance: CLOPIDOGREL BISULFATE
     Indication: Product used for unknown indication
     Dosage: UNK
     Route: 065
  4. ASPIRIN [Concomitant]
     Active Substance: ASPIRIN
     Indication: Product used for unknown indication
     Dosage: UNK
     Route: 065

REACTIONS (15)
  - Cerebrovascular accident [Unknown]
  - Hypoaesthesia [Unknown]
  - Diplopia [Unknown]
  - Arthralgia [Unknown]
  - Subcutaneous abscess [Unknown]
  - Psoriasis [Unknown]
  - Skin lesion [Unknown]
  - Skin exfoliation [Unknown]
  - Papule [Unknown]
  - Skin discolouration [Unknown]
  - Pain of skin [Unknown]
  - Skin haemorrhage [Unknown]
  - Erythema annulare [Unknown]
  - Product supply issue [Unknown]
  - Product dose omission issue [Unknown]

NARRATIVE: CASE EVENT DATE: 20200507
